FAERS Safety Report 24556523 (Version 6)
Quarter: 2025Q4

REPORT INFORMATION
  Report Type: Spontaneous
  Country: US (occurrence: US)
  Receive Date: 20241028
  Receipt Date: 20251231
  Transmission Date: 20260117
  Serious: No
  Sender: MERCK SHARP & DOHME LLC
  Company Number: US-009507513-2410USA002454

PATIENT
  Sex: Female
  Weight: 87.982 kg

DRUGS (15)
  1. WINREVAIR [Suspect]
     Active Substance: SOTATERCEPT-CSRK
     Indication: Product used for unknown indication
     Dosage: DOSE DESCRIPTION : UNK
     Dates: start: 2024
  2. WINREVAIR [Suspect]
     Active Substance: SOTATERCEPT-CSRK
  3. WINREVAIR [Suspect]
     Active Substance: SOTATERCEPT-CSRK
  4. WINREVAIR [Suspect]
     Active Substance: SOTATERCEPT-CSRK
  5. REMODULIN [Suspect]
     Active Substance: TREPROSTINIL
     Indication: Pulmonary arterial hypertension
     Dosage: CURRENT DOSE: 0.08 UG/KG, CONTINUOUS; CONCENTRATION: 2.5 MG/ML
     Route: 041
     Dates: start: 20230807
  6. REMODULIN [Suspect]
     Active Substance: TREPROSTINIL
     Indication: Pulmonary arterial hypertension
     Dosage: DECREASED DOSE UP TO GOAL DOSE OF 70 NG/KG/MIN, CONTINUING, IV DRIP
     Route: 041
  7. REMODULIN [Suspect]
     Active Substance: TREPROSTINIL
     Indication: Pulmonary arterial hypertension
     Dosage: 2.5 MG/ML, CONTINUING
     Route: 041
  8. FIORICET [Concomitant]
     Active Substance: ACETAMINOPHEN\BUTALBITAL\CAFFEINE
     Dosage: DOSE DESCRIPTION : UNK
  9. MULTIVITAMINS [ASCORBIC ACID;ERGOCALCIFEROL;FOLIC ACID;NICOTINAMIDE... [Concomitant]
     Dosage: DOSE DESCRIPTION : UNK
  10. OPSUMIT [Concomitant]
     Active Substance: MACITENTAN
     Dosage: DOSE DESCRIPTION : UNK
  11. IMODIUM A-D [Concomitant]
     Active Substance: LOPERAMIDE HYDROCHLORIDE
     Dosage: DOSE DESCRIPTION : UNK
  12. REVATIO [Concomitant]
     Active Substance: SILDENAFIL CITRATE
     Dosage: DOSE DESCRIPTION : UNK
  13. ONDANSETRON HYDROCHLORIDE [Concomitant]
     Active Substance: ONDANSETRON HYDROCHLORIDE
     Dosage: DOSE DESCRIPTION : UNK
  14. TORSEMIDE [Concomitant]
     Active Substance: TORSEMIDE
     Dosage: DOSE DESCRIPTION : UNK
  15. AMBRISENTAN [Concomitant]
     Active Substance: AMBRISENTAN

REACTIONS (9)
  - Blood test abnormal [Unknown]
  - Injection site scab [Unknown]
  - Haemoglobin increased [Unknown]
  - Adverse event [Unknown]
  - Platelet count decreased [Unknown]
  - Vascular injury [Unknown]
  - Visual impairment [Unknown]
  - Dizziness [Unknown]
  - Fatigue [Unknown]

NARRATIVE: CASE EVENT DATE: 20240101
